FAERS Safety Report 19291204 (Version 1)
Quarter: 2021Q2

REPORT INFORMATION
  Report Type: Spontaneous
  Country: GB (occurrence: GB)
  Receive Date: 20210523
  Receipt Date: 20210523
  Transmission Date: 20210717
  Serious: Yes (Disabling)
  Sender: FDA-Public Use
  Company Number: GB-TEVA-2021-GB-1913330

PATIENT
  Age: 4 Year
  Sex: Male
  Weight: 20.9 kg

DRUGS (2)
  1. HYDROCORTISONE. [Suspect]
     Active Substance: HYDROCORTISONE
     Indication: FUNGAL INFECTION
     Dosage: USE TWICE DAILY FOR 2 WEEKS
     Route: 061
     Dates: start: 20210430, end: 20210511
  2. CANESTEN [Suspect]
     Active Substance: CLOTRIMAZOLE
     Indication: FUNGAL INFECTION
     Dosage: USE TWICE DAILY FOR 2 WEEKS
     Route: 061
     Dates: start: 20210430, end: 20210511

REACTIONS (1)
  - Constipation [Not Recovered/Not Resolved]

NARRATIVE: CASE EVENT DATE: 20210502
